FAERS Safety Report 10725885 (Version 1)
Quarter: 2015Q1

REPORT INFORMATION
  Report Type: Spontaneous
  Country: AU (occurrence: None)
  Receive Date: 20150116
  Receipt Date: 20150116
  Transmission Date: 20150721
  Serious: Yes (Hospitalization)
  Sender: FDA-Public Use
  Company Number: 2015AU010968

PATIENT
  Weight: 86.6 kg

DRUGS (6)
  1. ALOXI [Suspect]
     Active Substance: PALONOSETRON HYDROCHLORIDE
     Dosage: 0.25 MG, SINGLE
     Dates: start: 20141017
  2. DEXAMETHASONE (DEXAMETHASONE) [Suspect]
     Active Substance: DEXAMETHASONE
     Dates: start: 20141017
  3. LORATADINE (LORATADINE) (LORATADINE) [Suspect]
     Active Substance: LORATADINE
     Dosage: 10 GBQ, QD
     Dates: start: 20141017
  4. RANITIDINE [Suspect]
     Active Substance: RANITIDINE\RANITIDINE HYDROCHLORIDE
     Dates: start: 20141017
  5. EMEND [Suspect]
     Active Substance: APREPITANT
     Dates: start: 20141017
  6. METOCLOPRAMIDE HYDROCHLORIDE (METOCLOPRAMIDE HYDROCHLORIDE) (METOCLOPRAMIDE HYDROCHLORIDE) [Suspect]
     Active Substance: METOCLOPRAMIDE HYDROCHLORIDE
     Dates: start: 20141017

REACTIONS (1)
  - Dyspnoea [None]
